FAERS Safety Report 18940049 (Version 2)
Quarter: 2021Q1

REPORT INFORMATION
  Report Type: Spontaneous
  Country: US (occurrence: US)
  Receive Date: 20210225
  Receipt Date: 20210318
  Transmission Date: 20210420
  Serious: No
  Sender: FDA-Public Use
  Company Number: US-SA-2021SA063869

PATIENT
  Sex: Male

DRUGS (15)
  1. DUPIXENT [Suspect]
     Active Substance: DUPILUMAB
     Indication: DERMATITIS ATOPIC
     Dosage: 300 MG, QOW
     Route: 058
  2. CLOBETASOL [Concomitant]
     Active Substance: CLOBETASOL
  3. PIMECROLIMUS. [Concomitant]
     Active Substance: PIMECROLIMUS
  4. GABITRIL [Concomitant]
     Active Substance: TIAGABINE HYDROCHLORIDE
  5. METOPROLOL SUCCINATE. [Concomitant]
     Active Substance: METOPROLOL SUCCINATE
  6. ONFI [Concomitant]
     Active Substance: CLOBAZAM
  7. VIMPAT [Concomitant]
     Active Substance: LACOSAMIDE
  8. AMITIZA [Concomitant]
     Active Substance: LUBIPROSTONE
  9. DUPIXENT [Suspect]
     Active Substance: DUPILUMAB
     Indication: ILLNESS
  10. DOXYCYCLINE HYCLATE. [Concomitant]
     Active Substance: DOXYCYCLINE HYCLATE
  11. METOPROLOL SUCCINATE. [Concomitant]
     Active Substance: METOPROLOL SUCCINATE
  12. TACROLIMUS. [Concomitant]
     Active Substance: TACROLIMUS
  13. PLAQUENIL [Concomitant]
     Active Substance: HYDROXYCHLOROQUINE SULFATE
  14. SINGULAIR [Concomitant]
     Active Substance: MONTELUKAST SODIUM
     Dosage: 200 MG
  15. VENTOLIN [Concomitant]
     Active Substance: ALBUTEROL SULFATE

REACTIONS (5)
  - Pain [Unknown]
  - Rash macular [Unknown]
  - Product use in unapproved indication [Unknown]
  - Memory impairment [Unknown]
  - Pruritus [Unknown]
